FAERS Safety Report 16110886 (Version 1)
Quarter: 2019Q1

REPORT INFORMATION
  Report Type: Spontaneous
  Country: FR (occurrence: FR)
  Receive Date: 20190325
  Receipt Date: 20190325
  Transmission Date: 20190418
  Serious: Yes (Hospitalization)
  Sender: FDA-Public Use
  Company Number: FR-ROCHE-2286102

PATIENT
  Age: 25 Year
  Sex: Female
  Weight: 31 kg

DRUGS (3)
  1. HUMIRA [Suspect]
     Active Substance: ADALIMUMAB
     Indication: JUVENILE IDIOPATHIC ARTHRITIS
     Route: 058
     Dates: start: 201601, end: 201801
  2. RITUXIMAB. [Suspect]
     Active Substance: RITUXIMAB
     Indication: JUVENILE IDIOPATHIC ARTHRITIS
     Route: 042
     Dates: start: 201701, end: 201801
  3. METHOTREXATE. [Concomitant]
     Active Substance: METHOTREXATE
     Indication: JUVENILE IDIOPATHIC ARTHRITIS
     Dosage: MOST RECENT DOSE IN JAN/2018
     Route: 048
     Dates: start: 201601

REACTIONS (3)
  - Decreased appetite [Not Recovered/Not Resolved]
  - Pyrexia [Not Recovered/Not Resolved]
  - Sarcoidosis [Not Recovered/Not Resolved]

NARRATIVE: CASE EVENT DATE: 201701
